FAERS Safety Report 17060069 (Version 2)
Quarter: 2019Q4

REPORT INFORMATION
  Report Type: Spontaneous
  Country: US (occurrence: US)
  Receive Date: 20191121
  Receipt Date: 20191213
  Transmission Date: 20200122
  Serious: No
  Sender: FDA-Public Use
  Company Number: US-NOVOPROD-687407

PATIENT
  Age: 70 Year
  Sex: Male

DRUGS (4)
  1. NOVOLOG [Suspect]
     Active Substance: INSULIN ASPART
     Indication: TYPE 1 DIABETES MELLITUS
     Dosage: 6- 8 UNITS 3 TIMES A DAY DEPENDING ON SUGARS LEVEL
     Route: 058
     Dates: start: 20190501
  2. PREDNISONE. [Suspect]
     Active Substance: PREDNISONE
     Indication: HASHIMOTO^S ENCEPHALOPATHY
     Dosage: 5 MG
     Route: 048
     Dates: start: 20190501
  3. LEVEMIR [Suspect]
     Active Substance: INSULIN DETEMIR
     Indication: TYPE 1 DIABETES MELLITUS
     Dosage: 8 IU, QD
     Route: 058
     Dates: start: 20190501
  4. PREDNISONE. [Suspect]
     Active Substance: PREDNISONE
     Dosage: DOSE DECREASED
     Route: 048

REACTIONS (1)
  - Myopathy [Recovering/Resolving]

NARRATIVE: CASE EVENT DATE: 201906
